FAERS Safety Report 18090840 (Version 1)
Quarter: 2020Q3

REPORT INFORMATION
  Report Type: Spontaneous
  Country: AE (occurrence: AE)
  Receive Date: 20200729
  Receipt Date: 20200729
  Transmission Date: 20201103
  Serious: Yes (Hospitalization, Other)
  Sender: FDA-Public Use
  Company Number: AE-ASTRAZENECA-2020SE93559

PATIENT
  Age: 20888 Day
  Sex: Male

DRUGS (1)
  1. IMFINZI [Suspect]
     Active Substance: DURVALUMAB
     Indication: TRANSITIONAL CELL CARCINOMA URETHRA
     Route: 042
     Dates: start: 20200528, end: 20200712

REACTIONS (1)
  - Mass [Unknown]

NARRATIVE: CASE EVENT DATE: 20200712
